FAERS Safety Report 14340611 (Version 1)
Quarter: 2018Q1

REPORT INFORMATION
  Report Type: Spontaneous
  Country: US (occurrence: US)
  Receive Date: 20180101
  Receipt Date: 20180101
  Transmission Date: 20180509
  Serious: No
  Sender: FDA-Public Use
  Company Number: US-B.I. PHARMACEUTICALS,INC./RIDGEFIELD-2017-BI-068549

PATIENT
  Age: 75 Year
  Sex: Female

DRUGS (8)
  1. BABY ASPIRIN [Concomitant]
     Active Substance: ASPIRIN
     Indication: PRODUCT USED FOR UNKNOWN INDICATION
     Dosage: ONE CAPLET DAILY;  FORM STRENGTH: 80MG; FORMULATION: CAPLET
     Route: 048
  2. LOSARTAN. [Concomitant]
     Active Substance: LOSARTAN
     Indication: HYPERTENSION
     Dosage: ONE CAPLET DAILY;  FORM STRENGTH: 100MG; FORMULATION: CAPLET
     Route: 048
  3. FLUOXETINE [Concomitant]
     Active Substance: FLUOXETINE HYDROCHLORIDE
     Indication: DEPRESSION
     Dosage: ONE TABLET DAILY;  FORM STRENGTH: 40 MG; FORMULATION: TABLET
     Route: 048
  4. GLIPIZIDE. [Concomitant]
     Active Substance: GLIPIZIDE
     Indication: DIABETES MELLITUS
     Dosage: ONE CAPLET DAILY;  FORM STRENGTH: 2.5MG; FORMULATION: CAPLET
     Route: 048
  5. TRADJENTA [Suspect]
     Active Substance: LINAGLIPTIN
     Indication: DIABETES MELLITUS
     Route: 048
     Dates: start: 2016
  6. RANITIDINE. [Concomitant]
     Active Substance: RANITIDINE
     Indication: GASTROOESOPHAGEAL REFLUX DISEASE
     Dosage: ONE CAPLET BID;  FORM STRENGTH: 150MG; FORMULATION: CAPLET
     Route: 048
  7. CETIRIZINE [Concomitant]
     Active Substance: CETIRIZINE HYDROCHLORIDE
     Indication: SEASONAL ALLERGY
     Dosage: ONE CAPLET DAILY; AS NEEDED;  FORM STRENGTH: 10MG; FORMULATION: CAPLET
     Route: 048
  8. MAGNESIUM OXIDE. [Concomitant]
     Active Substance: MAGNESIUM OXIDE
     Indication: BLOOD MAGNESIUM DECREASED
     Dosage: ONE TABLET DAILY;  FORM STRENGTH: 400MG; FORMULATION: TABLET
     Route: 048
     Dates: start: 20171219

REACTIONS (5)
  - Ear pain [Recovered/Resolved]
  - Laryngitis [Recovered/Resolved]
  - Bronchitis [Unknown]
  - Viral infection [Unknown]
  - Blood magnesium decreased [Unknown]

NARRATIVE: CASE EVENT DATE: 20171103
